FAERS Safety Report 10021223 (Version 1)
Quarter: 2014Q1

REPORT INFORMATION
  Report Type: Spontaneous
  Country: JP (occurrence: None)
  Receive Date: 20140313
  Receipt Date: 20140313
  Transmission Date: 20141002
  Serious: Yes (Other)
  Sender: FDA-Public Use
  Company Number: SYM-2014-17525

PATIENT
  Age: 78 Year
  Sex: Female

DRUGS (13)
  1. HERBESSER R (DILTIAZEM HYDROCHLORIDE) (CAPSULE) (DILTIAZEM HYDROCHLORIDE) [Suspect]
     Indication: HYPERTENSION
     Route: 048
     Dates: end: 20140124
  2. XARELTO [Suspect]
     Indication: ATRIAL FIBRILLATION
     Route: 048
     Dates: start: 20131215, end: 20140123
  3. TENELIA [Suspect]
     Indication: DIABETES MELLITUS
     Route: 048
     Dates: start: 20131230, end: 20140108
  4. ITOROL (ISOSORBIDE MONONITRATE) (ISOSORBIDE MONOITRATE) [Concomitant]
  5. IMURAN (AZATHIOPRINE) (AZATHIOPRINE) [Concomitant]
  6. PREDONINE (PREDNISOLONE) (PREDNISOLONE) [Concomitant]
  7. BLOPRESS (CANDESARTAN CILEXETIL) (CANDESARTAN CILEXETIL) [Concomitant]
  8. ARTIST (CARVEDILOL) (CARVEDILOL) [Concomitant]
  9. PARIET (RABEPRAZOLE SODIUM) (RABEPRAZOLE SODIUM) [Concomitant]
  10. AMARYL (GLIMEPIRIDE) (GLIMEPIRIDE) [Concomitant]
  11. NESINA (ALOGLIPTIN BENZOATE) (ALOGLIPTIN BENZOATE) [Concomitant]
  12. AMLODIN (AMLODIPINE BESILATE) (AMLODIPINE BESILATE) [Concomitant]
  13. PLAVIX (CLOPIDOGREL BISULFATE) (CLOPIDOGREL BISULFATE) [Concomitant]

REACTIONS (6)
  - Hypotension [None]
  - Activated partial thromboplastin time prolonged [None]
  - Vision blurred [None]
  - Dizziness [None]
  - Blood pressure systolic decreased [None]
  - Drug interaction [None]
